FAERS Safety Report 9227252 (Version 3)
Quarter: 2013Q2

REPORT INFORMATION
  Report Type: Spontaneous
  Country: NL (occurrence: None)
  Receive Date: 20130410
  Receipt Date: 20130529
  Transmission Date: 20140414
  Serious: Yes (Death, Other)
  Sender: FDA-Public Use
  Company Number: NL-20130007

PATIENT
  Age: 74 Year
  Sex: Female

DRUGS (18)
  1. HEXABRIX [Suspect]
     Indication: ARTERIOGRAM CORONARY
     Route: 013
     Dates: start: 20130222, end: 20130222
  2. SODIUM CHLORIDE [Concomitant]
  3. HEPARIN [Concomitant]
  4. LIDOCAINE [Concomitant]
  5. APROVEL [Concomitant]
  6. BURINEX [Concomitant]
  7. ALDACTONE [Concomitant]
  8. SELOKEEN /00376902/ [Concomitant]
  9. ADALAT [Concomitant]
  10. LOSEC [Concomitant]
  11. ARCOXIA [Concomitant]
  12. LOPRAMIDE (LOPERAMIDE HYDROCHLORIDE) (LOPERAMIDE HYDROCHLORIDE) [Concomitant]
  13. ASCAL (ACETYLSALICYLIATE CALCIUM) (ACETYLSALICYLATE CALCIUM) [Concomitant]
  14. INSULIN (INSULIN) (INSULIN) [Concomitant]
  15. SELEKTINE (PRAVASTATIN) (PRAVASTATINE) [Concomitant]
  16. MONOCEDOCARD (ISOSORBIDE MONONITRATE) (ISOSORBIDE MONONITRATE) [Concomitant]
  17. EMSELEX (DARIFENACIN) (DARIFENACIN) [Concomitant]
  18. DIAZEPAM (DIAZEPAM (DIAZEPAM) [Concomitant]

REACTIONS (13)
  - Shock [None]
  - Sepsis [None]
  - Leukopenia [None]
  - Bacterial toxaemia [None]
  - Lactic acidosis [None]
  - Drug interaction [None]
  - Liver function test abnormal [None]
  - Respiratory failure [None]
  - Vascular dissection [None]
  - Blood glucose increased [None]
  - Retroperitoneal haemorrhage [None]
  - Product quality issue [None]
  - Bacterial toxaemia [None]
